FAERS Safety Report 6544065-X (Version None)
Quarter: 2010Q1

REPORT INFORMATION
  Report Type: 
  Country: None (occurrence: None)
  Receive Date: 20100119
  Receipt Date: 20100119
  Transmission Date: 20100710
  Serious: Yes (Hospitalization)
  Sender: FDA-Public Use
  Company Number: None

PATIENT
  Age: 23 Year
  Sex: Female
  Weight: 63.5036 kg

DRUGS (2)
  1. TYLENOL [Suspect]
     Indication: HEADACHE
     Dosage: 2 CAPLETS 4 HOURS PO
     Route: 048
     Dates: start: 20100109, end: 20100112
  2. TYLENOL [Suspect]
     Indication: MUSCLE FATIGUE
     Dosage: 2 CAPLETS 4 HOURS PO
     Route: 048
     Dates: start: 20100109, end: 20100112

REACTIONS (7)
  - ABDOMINAL PAIN UPPER [None]
  - DIARRHOEA [None]
  - GASTROINTESTINAL PAIN [None]
  - POOR QUALITY DRUG ADMINISTERED [None]
  - PRODUCT CONTAMINATION [None]
  - PRODUCT QUALITY ISSUE [None]
  - VOMITING [None]
